FAERS Safety Report 23708850 (Version 2)
Quarter: 2024Q2

REPORT INFORMATION
  Report Type: Spontaneous
  Country: PE (occurrence: PE)
  Receive Date: 20240404
  Receipt Date: 20240422
  Transmission Date: 20240716
  Serious: Yes (Hospitalization)
  Sender: FDA-Public Use
  Company Number: PE-TEVA-VS-3178126

PATIENT
  Age: 29 Year
  Sex: Male

DRUGS (2)
  1. PREDNISONE [Suspect]
     Active Substance: PREDNISONE
     Indication: Polymyositis
     Dosage: 20MG EVERY 8H FOR 5 DAYS
     Route: 048
     Dates: end: 2023
  2. PREDNISONE [Suspect]
     Active Substance: PREDNISONE
     Indication: Polymyositis
     Dosage: 50MG EVERY 8H FOR 3 DAYS
     Route: 048

REACTIONS (4)
  - Strongyloidiasis [Recovered/Resolved]
  - Intestinal obstruction [Recovered/Resolved]
  - Treatment noncompliance [Unknown]
  - Intentional product misuse [Unknown]

NARRATIVE: CASE EVENT DATE: 20230101
